FAERS Safety Report 19276553 (Version 2)
Quarter: 2021Q3

REPORT INFORMATION
  Report Type: Spontaneous
  Country: US (occurrence: US)
  Receive Date: 20210520
  Receipt Date: 20210928
  Transmission Date: 20211014
  Serious: Yes (Other)
  Sender: FDA-Public Use
  Company Number: US-LAURUS-001072

PATIENT
  Age: 20 Year
  Sex: Female

DRUGS (2)
  1. EMTRICITABINE AND TENOFOVIR DISOPROXIL FUMARATE [Suspect]
     Active Substance: EMTRICITABINE\TENOFOVIR DISOPROXIL FUMARATE
     Indication: HIV INFECTION
     Dosage: 1 COURSE, TAB/CAP.
     Route: 048
     Dates: start: 20210314
  2. TIVICAY [Suspect]
     Active Substance: DOLUTEGRAVIR SODIUM
     Indication: HIV INFECTION
     Dosage: 1 COURSE, TAB/CAP.
     Route: 048
     Dates: start: 20210314

REACTIONS (2)
  - Abortion induced [Unknown]
  - Exposure during pregnancy [Unknown]

NARRATIVE: CASE EVENT DATE: 20210322
